FAERS Safety Report 8530493-X (Version None)
Quarter: 2012Q3

REPORT INFORMATION
  Report Type: 
  Country: None (occurrence: None)
  Receive Date: 20120723
  Receipt Date: 20120717
  Transmission Date: 20120928
  Serious: Yes (Disabling, Other)
  Sender: FDA-Public Use
  Company Number: US-009507513-1204USA00487

PATIENT

DRUGS (3)
  1. FOSAMAX [Suspect]
     Dosage: UNK
     Route: 048
     Dates: start: 19950101, end: 20111001
  2. FOSAMAX [Suspect]
     Indication: OSTEOPOROSIS
     Dosage: UNK
     Route: 048
     Dates: start: 19950101, end: 20111001
  3. FOSAMAX PLUS D [Suspect]
     Dosage: UNK
     Dates: start: 19950101

REACTIONS (3)
  - BONE DISORDER [None]
  - FEMUR FRACTURE [None]
  - BONE DENSITY DECREASED [None]
